FAERS Safety Report 19166325 (Version 1)
Quarter: 2021Q2

REPORT INFORMATION
  Report Type: Spontaneous
  Country: US (occurrence: US)
  Receive Date: 20210422
  Receipt Date: 20210422
  Transmission Date: 20210717
  Serious: No
  Sender: FDA-Public Use
  Company Number: US-AMGEN-USASP2021059473

PATIENT
  Age: 76 Year
  Sex: Female

DRUGS (4)
  1. CALCITONIN [Concomitant]
     Active Substance: CALCITONIN
  2. VITAMIN D [ERGOCALCIFEROL] [Concomitant]
     Active Substance: ERGOCALCIFEROL
     Dosage: 1000
  3. OSCAL [CALCITRIOL] [Concomitant]
     Dosage: UNK UNK, QD
  4. PROLIA [Suspect]
     Active Substance: DENOSUMAB
     Indication: OSTEOPOROSIS POSTMENOPAUSAL
     Route: 065

REACTIONS (4)
  - Blood calcium decreased [Recovered/Resolved]
  - Blood sodium decreased [Unknown]
  - Blood urea increased [Unknown]
  - Blood creatinine increased [Unknown]
